FAERS Safety Report 9337133 (Version 4)
Quarter: 2013Q3

REPORT INFORMATION
  Report Type: Report from Study
  Country: JP (occurrence: JP)
  Receive Date: 20130607
  Receipt Date: 20130802
  Transmission Date: 20140515
  Serious: Yes (Hospitalization)
  Sender: FDA-Public Use
  Company Number: JP-PFIZER INC-2013158583

PATIENT
  Age: 70 Year
  Sex: Male
  Weight: 69 kg

DRUGS (26)
  1. IRINOTECAN HCL [Suspect]
     Indication: COLON CANCER
     Dosage: 180 MG/M2, CYCLIC
     Route: 042
     Dates: start: 20130325
  2. IRINOTECAN HCL [Suspect]
     Dosage: CYCLE 2
     Dates: start: 20130408
  3. IRINOTECAN HCL [Suspect]
     Dosage: 120 MG/M2, CYCLE 3
     Route: 042
     Dates: start: 20130510
  4. IRINOTECAN HCL [Suspect]
     Dosage: CYCLE 4
     Route: 042
     Dates: start: 20130527, end: 20130612
  5. FLUOROURACIL [Suspect]
     Indication: COLON CANCER
     Dosage: BOLUS 400 MG/M2. CYCLIC
     Route: 040
     Dates: start: 20130325
  6. FLUOROURACIL [Suspect]
     Dosage: CONTINUOUS INFUSION 2400 MG/M2, CYCLIC
     Route: 042
     Dates: start: 20130325
  7. FLUOROURACIL [Suspect]
     Dosage: CYCLE 2
     Dates: start: 20130408
  8. FLUOROURACIL [Suspect]
     Dosage: CONTINUOUS INFUSION 1200 MG/M2. CYCLE 3
     Route: 042
     Dates: start: 20130510
  9. FLUOROURACIL [Suspect]
     Dosage: CYCLE 4
     Route: 042
     Dates: start: 20130527, end: 20130612
  10. FOLINIC ACID [Suspect]
     Indication: COLON CANCER
     Dosage: 400 MG/M2, CYCLIC
     Route: 042
     Dates: start: 20130325
  11. FOLINIC ACID [Suspect]
     Dosage: CYCLE 2
     Dates: start: 20130408
  12. FOLINIC ACID [Suspect]
     Dosage: CYCLE 3
     Dates: start: 20130510
  13. FOLINIC ACID [Suspect]
     Dosage: CYCLE 4
     Route: 042
     Dates: start: 20130527, end: 20130612
  14. BLINDED THERAPY [Suspect]
     Indication: COLON CANCER
     Dosage: CYCLIC
     Route: 042
     Dates: start: 20130325, end: 20130408
  15. BLINDED THERAPY [Suspect]
     Dosage: CYCLE 2
     Dates: start: 20130408
  16. BLINDED THERAPY [Suspect]
     Dosage: CYCLE 3
     Dates: start: 20130510, end: 20130527
  17. BLINDED THERAPY [Suspect]
     Dosage: CYCLE 4
     Route: 042
     Dates: start: 20130527, end: 20130612
  18. CALONAL [Concomitant]
     Indication: PYREXIA
     Dosage: AS NEEDED BASIS
     Dates: start: 20130325
  19. AMLODIPIN [Concomitant]
     Indication: HYPERTENSION
     Dosage: UNK
     Dates: start: 20130329
  20. TAKEPRON [Concomitant]
     Indication: PROPHYLAXIS AGAINST GASTROINTESTINAL ULCER
     Dosage: UNK
     Dates: start: 20130323
  21. RINDERON 1 [Concomitant]
     Dosage: UNK
     Dates: start: 20130426
  22. CRAVIT [Concomitant]
     Dosage: UNK
     Dates: start: 20130426
  23. NOVAMIN [Concomitant]
  24. PRIMPERAN [Concomitant]
     Dosage: UNK
     Dates: start: 20130702, end: 20130702
  25. PRIMPERAN [Concomitant]
     Dosage: UNK
  26. VITAMEDIN INTRAVENOUS [Concomitant]
     Dosage: UNK
     Route: 042
     Dates: start: 20130702, end: 20130702

REACTIONS (1)
  - Cholangitis [Recovering/Resolving]
